FAERS Safety Report 14099602 (Version 5)
Quarter: 2017Q4

REPORT INFORMATION
  Report Type: Report from Study
  Country: ES (occurrence: ES)
  Receive Date: 20171017
  Receipt Date: 20171204
  Transmission Date: 20180321
  Serious: Yes (Hospitalization)
  Sender: FDA-Public Use
  Company Number: PHHO2017ES014192

PATIENT
  Age: 66 Year
  Sex: Male
  Weight: 117 kg

DRUGS (14)
  1. LBH589 [Suspect]
     Active Substance: PANOBINOSTAT
     Indication: PLASMA CELL MYELOMA
     Dosage: 15 MG, OT (CYCLE 1 TO 4)
     Route: 048
     Dates: start: 20161024
  2. BORTEZOMIB [Suspect]
     Active Substance: BORTEZOMIB
     Dosage: 1.3 MG/M2
     Route: 058
     Dates: start: 20170116, end: 20171002
  3. LBH589 [Suspect]
     Active Substance: PANOBINOSTAT
     Dosage: 20 MG, QD (CYCLE 5+)
     Route: 048
     Dates: start: 20170116, end: 20171005
  4. ACYCLOVIR. [Concomitant]
     Active Substance: ACYCLOVIR
     Indication: PROPHYLAXIS
     Dosage: 800 MG, Q12H
     Route: 048
     Dates: start: 20161024
  5. APIDRA SOLOSTAR [Concomitant]
     Active Substance: INSULIN GLULISINE
     Indication: DIABETES MELLITUS
     Dosage: 100 U/ML, 6-6-6
     Route: 058
  6. HEPARIN [Concomitant]
     Active Substance: HEPARIN SODIUM
     Indication: PROPHYLAXIS
     Dosage: 0.24 ML, QD
     Route: 058
     Dates: start: 20161114
  7. TOUJEO [Concomitant]
     Active Substance: INSULIN GLARGINE
     Indication: DIABETES MELLITUS
     Dosage: 15 MG
     Route: 058
  8. JANUMET [Concomitant]
     Active Substance: METFORMIN HYDROCHLORIDE\SITAGLIPTIN PHOSPHATE
     Indication: DIABETES MELLITUS
     Dosage: 50/1000 MG Q12HR
     Route: 048
     Dates: start: 2014
  9. EMCONCOR [Concomitant]
     Active Substance: BISOPROLOL FUMARATE
     Indication: HYPERTENSION
     Dosage: 3 MG, QD
     Route: 048
     Dates: start: 2012
  10. BORTEZOMIB [Suspect]
     Active Substance: BORTEZOMIB
     Indication: PLASMA CELL MYELOMA
     Dosage: 3 MG, OT
     Route: 058
     Dates: start: 20161024
  11. DEXAMETHASONE. [Suspect]
     Active Substance: DEXAMETHASONE
     Dosage: 20 MG, QD (CYCLE 5+)
     Route: 048
     Dates: start: 20170116, end: 20171016
  12. DEXAMETHASONE. [Suspect]
     Active Substance: DEXAMETHASONE
     Indication: PLASMA CELL MYELOMA
     Dosage: 20 MG, QD (CYCLE 1 TO 4)
     Route: 048
     Dates: start: 20161024
  13. HIDROCLOROTIAZIDA [Concomitant]
     Active Substance: HYDROCHLOROTHIAZIDE
     Indication: HYPERTENSION
     Dosage: 50 MG, BIW
     Route: 048
     Dates: start: 201206, end: 20171009
  14. ATORVASTATINA [Concomitant]
     Active Substance: ATORVASTATIN
     Indication: HYPERTENSION
     Dosage: 40 MG, QD
     Route: 048
     Dates: start: 2012

REACTIONS (2)
  - Cardiac failure acute [Recovered/Resolved with Sequelae]
  - Acute pulmonary oedema [Recovered/Resolved with Sequelae]

NARRATIVE: CASE EVENT DATE: 20171010
